FAERS Safety Report 10279809 (Version 2)
Quarter: 2014Q3

REPORT INFORMATION
  Report Type: Spontaneous
  Country: TN (occurrence: TN)
  Receive Date: 20140707
  Receipt Date: 20140715
  Transmission Date: 20150326
  Serious: Yes (Hospitalization, Other)
  Sender: FDA-Public Use
  Company Number: TN-RANBAXY-2014RR-83295

PATIENT
  Age: 16 Year
  Sex: Female

DRUGS (2)
  1. MEFENAMIC ACID. [Interacting]
     Active Substance: MEFENAMIC ACID
     Indication: URINARY TRACT INFECTION
     Dosage: UNK
     Route: 065
  2. CIPROFLOXACIN. [Suspect]
     Active Substance: CIPROFLOXACIN
     Indication: URINARY TRACT INFECTION
     Dosage: 500 MG, BID
     Route: 065

REACTIONS (2)
  - Drug interaction [Recovered/Resolved]
  - Crystal nephropathy [Recovered/Resolved]
